FAERS Safety Report 12856817 (Version 7)
Quarter: 2017Q1

REPORT INFORMATION
  Report Type: Spontaneous
  Country: US (occurrence: US)
  Receive Date: 20161018
  Receipt Date: 20170131
  Transmission Date: 20170428
  Serious: No
  Sender: FDA-Public Use
  Company Number: US-PFIZER INC-2016482938

PATIENT
  Age: 85 Year
  Sex: Female
  Weight: 71.67 kg

DRUGS (4)
  1. OXYCODONE [Concomitant]
     Active Substance: OXYCODONE
     Indication: HERPES ZOSTER
     Dosage: UNK
     Route: 048
     Dates: start: 20160807, end: 20160922
  2. LYRICA [Suspect]
     Active Substance: PREGABALIN
     Indication: POST HERPETIC NEURALGIA
     Dosage: 50 MG, 2X/DAY
     Route: 048
     Dates: start: 20160927, end: 20160927
  3. OXYCODONE [Concomitant]
     Active Substance: OXYCODONE
     Dosage: 5MG ONE TABLET BY MOUTH THREE TIMES A DAY IF NEEDED
     Route: 048
     Dates: start: 201608, end: 201610
  4. GABAPENTIN. [Concomitant]
     Active Substance: GABAPENTIN
     Indication: NEURALGIA
     Dosage: 300MG CAPSULSE, TWO IN THE AFTERNOON AND TWO AT BEDTIME
     Dates: start: 20160807, end: 20161015

REACTIONS (11)
  - Tension [Recovered/Resolved]
  - Fatigue [Not Recovered/Not Resolved]
  - Pain [Not Recovered/Not Resolved]
  - Agitation [Not Recovered/Not Resolved]
  - Pain in extremity [Recovered/Resolved]
  - Malaise [Recovered/Resolved]
  - Restlessness [Unknown]
  - Feeling hot [Recovered/Resolved]
  - Insomnia [Not Recovered/Not Resolved]
  - Condition aggravated [Recovered/Resolved]
  - Burning sensation [Not Recovered/Not Resolved]

NARRATIVE: CASE EVENT DATE: 20160927
